FAERS Safety Report 5414346-1 (Version None)
Quarter: 2007Q3

REPORT INFORMATION
  Report Type: 
  Country: None (occurrence: None)
  Receive Date: 20070814
  Receipt Date: 20070803
  Transmission Date: 20080115
  Serious: Yes (Hospitalization)
  Sender: FDA-Public Use
  Company Number: DE-SHR-DE-2007-023604

PATIENT
  Age: 39 Year
  Sex: Female
  Weight: 46 kg

DRUGS (2)
  1. BETAFERON [Suspect]
     Indication: MULTIPLE SCLEROSIS
     Dosage: 1 ML, EVERY 2D
     Route: 058
     Dates: start: 20070423, end: 20070612
  2. ESOMEPRAZOLE MAGNESIUM [Concomitant]
     Dosage: 40 MG, 1X/DAY

REACTIONS (1)
  - HEPATIC NECROSIS [None]
